FAERS Safety Report 17116904 (Version 1)
Quarter: 2019Q4

REPORT INFORMATION
  Report Type: Spontaneous
  Country: US (occurrence: US)
  Receive Date: 20191205
  Receipt Date: 20191205
  Transmission Date: 20200122
  Serious: No
  Sender: FDA-Public Use
  Company Number: US-009507513-1911USA009496

PATIENT
  Age: 44 Year
  Sex: Female
  Weight: 94.79 kg

DRUGS (2)
  1. NEXPLANON [Suspect]
     Active Substance: ETONOGESTREL
     Dosage: FIRST IMPLANT
     Route: 059
     Dates: start: 2016
  2. NEXPLANON [Suspect]
     Active Substance: ETONOGESTREL
     Dosage: SECOND IMPLANT
     Route: 059
     Dates: start: 201911

REACTIONS (7)
  - Circumstance or information capable of leading to medication error [Unknown]
  - Complication associated with device [Not Recovered/Not Resolved]
  - Overdose [Unknown]
  - Device deployment issue [Unknown]
  - Incorrect product administration duration [Unknown]
  - Complication of device removal [Not Recovered/Not Resolved]
  - Device breakage [Not Recovered/Not Resolved]

NARRATIVE: CASE EVENT DATE: 2019
